FAERS Safety Report 8622829-6 (Version None)
Quarter: 2012Q3

REPORT INFORMATION
  Report Type: 
  Country: None (occurrence: None)
  Receive Date: 20120827
  Receipt Date: 20120816
  Transmission Date: 20120928
  Serious: Yes (Other)
  Sender: FDA-Public Use
  Company Number: PHHY2012BR071558

PATIENT
  Age: 73 Year
  Sex: Female

DRUGS (1)
  1. FORMOTEROL FUMARATE [Suspect]
     Dosage: UNK UKN, Q12H

REACTIONS (5)
  - VITAL CAPACITY DECREASED [None]
  - DEPRESSED MOOD [None]
  - SOMNOLENCE [None]
  - FORCED EXPIRATORY VOLUME DECREASED [None]
  - MALAISE [None]
